FAERS Safety Report 18570909 (Version 1)
Quarter: 2020Q4

REPORT INFORMATION
  Report Type: Spontaneous
  Country: US (occurrence: US)
  Receive Date: 20201202
  Receipt Date: 20201202
  Transmission Date: 20210114
  Serious: No
  Sender: FDA-Public Use
  Company Number: US-ROCHE-2700695

PATIENT
  Sex: Male

DRUGS (1)
  1. EVRYSDI [Suspect]
     Active Substance: RISDIPLAM
     Indication: PRODUCT USED FOR UNKNOWN INDICATION
     Dosage: HE STARTED ON RISDIPLAM THROUGH EAP IN EARLY AUGUST AND OCTOBER 13TH HE SWITCHED OVER TO COMMERCIAL
     Route: 065

REACTIONS (2)
  - Diarrhoea [Unknown]
  - Abdominal discomfort [Unknown]
